FAERS Safety Report 6383486-5 (Version None)
Quarter: 2009Q3

REPORT INFORMATION
  Report Type: 
  Country: None (occurrence: None)
  Receive Date: 20090928
  Receipt Date: 20090917
  Transmission Date: 20100115
  Serious: Yes (Other)
  Sender: FDA-Public Use
  Company Number: ADR28292009

PATIENT
  Age: 47 Year
  Sex: Male

DRUGS (4)
  1. CIPROFLOXACIN [Suspect]
     Dosage: 500 MG-TID
  2. AMISULPRIDE [Concomitant]
  3. CLOZAPINE [Concomitant]
  4. LORAZEPAM [Concomitant]

REACTIONS (2)
  - DRUG LEVEL INCREASED [None]
  - EPIDIDYMITIS [None]
